FAERS Safety Report 8818415 (Version 1)
Quarter: 2012Q4

REPORT INFORMATION
  Report Type: 
  Country: US (occurrence: US)
  Receive Date: 20121001
  Receipt Date: 20121001
  Transmission Date: 20130627
  Serious: No
  Sender: FDA-Public Use
  Company Number: US-BAYER-2012-099759

PATIENT
  Age: 81 Year
  Sex: Male

DRUGS (7)
  1. AVELOX [Suspect]
     Indication: PSEUDOMONAS INFECTION
     Dosage: 400 mg, QD
  2. AMOXICILLIN [Concomitant]
     Indication: PSEUDOMONAS INFECTION
  3. KEFLEX [Concomitant]
     Indication: PSEUDOMONAS INFECTION
     Dosage: UNK
  4. AUGMENTIN [Concomitant]
     Indication: PSEUDOMONAS INFECTION
     Dosage: UNK
     Dates: start: 201207
  5. TENEX [Concomitant]
  6. ANTIHYPERTENSIVES [Concomitant]
  7. CIPRO [Concomitant]
     Indication: PSEUDOMONAS INFECTION
     Dosage: UNK
     Dates: start: 20120921

REACTIONS (2)
  - Ear pain [None]
  - Alopecia [None]
